FAERS Safety Report 22131896 (Version 1)
Quarter: 2023Q1

REPORT INFORMATION
  Report Type: Other
  Country: ES (occurrence: ES)
  Receive Date: 20230323
  Receipt Date: 20230323
  Transmission Date: 20230417
  Serious: Yes (Other)
  Sender: FDA-Public Use
  Company Number: ES-FERRINGPH-2019FE03580

PATIENT
  Sex: Female

DRUGS (3)
  1. CETRORELIX [Suspect]
     Active Substance: CETRORELIX
     Indication: In vitro fertilisation
  2. FOLLITROPIN ALFA [Suspect]
     Active Substance: FOLLITROPIN ALFA
     Indication: In vitro fertilisation
  3. TRIPTORELIN ACETATE [Suspect]
     Active Substance: TRIPTORELIN ACETATE
     Indication: In vitro fertilisation

REACTIONS (1)
  - Choroidal neovascularisation [Recovered/Resolved]
